FAERS Safety Report 11794557 (Version 1)
Quarter: 2015Q4

REPORT INFORMATION
  Report Type: Spontaneous
  Country: JP (occurrence: JP)
  Receive Date: 20151202
  Receipt Date: 20151202
  Transmission Date: 20160305
  Serious: Yes (Other)
  Sender: FDA-Public Use
  Company Number: JP-ELI_LILLY_AND_COMPANY-JP201509001692

PATIENT
  Sex: Male

DRUGS (4)
  1. ALIMTA [Suspect]
     Active Substance: PEMETREXED DISODIUM
     Indication: NON-SMALL CELL LUNG CANCER
     Dosage: UNK
     Route: 042
  2. FRESMIN S                          /00091803/ [Concomitant]
     Dosage: UNK
  3. CISPLATIN. [Suspect]
     Active Substance: CISPLATIN
     Indication: NON-SMALL CELL LUNG CANCER
     Dosage: UNK
     Route: 042
  4. PANVITAN                           /05664201/ [Concomitant]
     Active Substance: VITAMINS
     Dosage: UNK

REACTIONS (1)
  - Deep vein thrombosis [Recovering/Resolving]
